FAERS Safety Report 10085089 (Version 5)
Quarter: 2014Q2

REPORT INFORMATION
  Report Type: Report from Study
  Country: US (occurrence: US)
  Receive Date: 20140417
  Receipt Date: 20140630
  Transmission Date: 20141212
  Serious: Yes (Death, Hospitalization)
  Sender: FDA-Public Use
  Company Number: US-ACTELION-A-US2013-89557

PATIENT
  Age: 68 Year
  Sex: Male

DRUGS (3)
  1. TRACLEER [Suspect]
     Indication: PULMONARY ARTERIAL HYPERTENSION
     Dosage: 125 MG, BID
     Route: 048
     Dates: start: 201104, end: 20140522
  2. REMODULIN [Concomitant]
  3. REVATIO [Concomitant]

REACTIONS (5)
  - Pulmonary hypertension [Fatal]
  - Right ventricular failure [Fatal]
  - Device related infection [Not Recovered/Not Resolved]
  - Dyspnoea [Recovering/Resolving]
  - Fluid retention [Not Recovered/Not Resolved]
